FAERS Safety Report 25768670 (Version 5)
Quarter: 2025Q4

REPORT INFORMATION
  Report Type: Report from Study
  Country: US (occurrence: US)
  Receive Date: 20250905
  Receipt Date: 20251015
  Transmission Date: 20260118
  Serious: Yes (Hospitalization)
  Sender: GILEAD
  Company Number: US-GILEAD-2025-0727022

PATIENT
  Age: 50 Year
  Sex: Male

DRUGS (8)
  1. AMBRISENTAN [Suspect]
     Active Substance: AMBRISENTAN
     Indication: Pulmonary arterial hypertension
     Dosage: 5 MG, QD
     Route: 048
     Dates: start: 202508
  2. AMBRISENTAN [Suspect]
     Active Substance: AMBRISENTAN
     Dosage: 10MG BY MOUTH DAILY
     Route: 048
     Dates: start: 202508
  3. UPTRAVI [Suspect]
     Active Substance: SELEXIPAG
     Indication: Pulmonary arterial hypertension
     Dosage: 400 UG, BID
     Route: 048
     Dates: start: 20250826
  4. UPTRAVI [Suspect]
     Active Substance: SELEXIPAG
     Dosage: INCREASED DOSE TO 600MCG BY MOUTH TWICE DAILY
     Route: 048
     Dates: start: 202508
  5. UPTRAVI [Suspect]
     Active Substance: SELEXIPAG
     Dosage: 800MCG BY MOUTH TWICE DAILY
     Route: 048
     Dates: start: 202508
  6. TADALAFIL [Suspect]
     Active Substance: TADALAFIL
     Indication: Pulmonary arterial hypertension
     Dosage: 20MG BY MOUTH ONCE DAILY FOR 2 WEEKS
     Route: 048
     Dates: start: 202509
  7. TADALAFIL [Suspect]
     Active Substance: TADALAFIL
     Dosage: INCREASED TO 40MG BY MOUTH ONCE DAILY
     Route: 048
     Dates: start: 202508
  8. ADCIRCA [Concomitant]
     Active Substance: TADALAFIL

REACTIONS (5)
  - Pain [Not Recovered/Not Resolved]
  - Pain in extremity [Not Recovered/Not Resolved]
  - Fatigue [Unknown]
  - Rhinorrhoea [Not Recovered/Not Resolved]
  - Headache [Unknown]
